FAERS Safety Report 19777963 (Version 1)
Quarter: 2021Q3

REPORT INFORMATION
  Report Type: Spontaneous
  Country: US (occurrence: US)
  Receive Date: 20210901
  Receipt Date: 20210901
  Transmission Date: 20211014
  Serious: Yes (Life-Threatening)
  Sender: FDA-Public Use
  Company Number: None

PATIENT
  Age: 26 Year
  Sex: Female
  Weight: 67.5 kg

DRUGS (9)
  1. PROBIOTIC [Concomitant]
     Active Substance: PROBIOTICS NOS
  2. DEXTROAMPHET SACCHARAT, AMPHET ASPARTATE, DEXTROAMPHET SULFATE AND AMPHET SULFAT [Suspect]
     Active Substance: AMPHETAMINE ASPARTATE\AMPHETAMINE SULFATE\DEXTROAMPHETAMINE SACCHARATE\DEXTROAMPHETAMINE SULFATE
     Indication: ATTENTION DEFICIT HYPERACTIVITY DISORDER
     Dosage: ?          QUANTITY:1 TABLET(S);?
     Route: 048
     Dates: start: 20210727, end: 20210822
  3. POTASSIUM [Concomitant]
     Active Substance: POTASSIUM
  4. BUPROPION XL [Concomitant]
     Active Substance: BUPROPION
  5. MAGNESIUM [Concomitant]
     Active Substance: MAGNESIUM
  6. VITAMIN B12 [Concomitant]
     Active Substance: CYANOCOBALAMIN
  7. MULTIVITAMIN [Concomitant]
     Active Substance: VITAMINS
  8. TURMERIC [Concomitant]
     Active Substance: HERBALS\TURMERIC
  9. VITAMIN D [Concomitant]
     Active Substance: VITAMIN D NOS

REACTIONS (10)
  - Mood swings [None]
  - Depression [None]
  - Therapy non-responder [None]
  - Anger [None]
  - Dissociation [None]
  - Suicidal ideation [None]
  - Dry mouth [None]
  - Product substitution issue [None]
  - Decreased interest [None]
  - Feeling abnormal [None]

NARRATIVE: CASE EVENT DATE: 20210821
